FAERS Safety Report 5503018-0 (Version None)
Quarter: 2007Q4

REPORT INFORMATION
  Report Type: 
  Country: None (occurrence: None)
  Receive Date: 20071029
  Receipt Date: 20071029
  Transmission Date: 20080405
  Serious: Yes (Life-Threatening, Hospitalization, Other)
  Sender: FDA-Public Use
  Company Number: None

PATIENT
  Sex: Female
  Weight: 79.3795 kg

DRUGS (1)
  1. GOLYTELY [Suspect]
     Indication: HAEMATOCHEZIA
     Dosage: ONE GLASS 10 MIN PO
     Route: 048
     Dates: start: 20070812, end: 20070812

REACTIONS (6)
  - ASTHENIA [None]
  - CONDITION AGGRAVATED [None]
  - DEHYDRATION [None]
  - DIARRHOEA [None]
  - FALL [None]
  - ILL-DEFINED DISORDER [None]
